FAERS Safety Report 9275402 (Version 3)
Quarter: 2013Q2

REPORT INFORMATION
  Report Type: Spontaneous
  Country: US (occurrence: US)
  Receive Date: 20130507
  Receipt Date: 20130625
  Transmission Date: 20140414
  Serious: No
  Sender: FDA-Public Use
  Company Number: US-PFIZER INC-2013140490

PATIENT
  Age: 59 Year
  Sex: Female
  Weight: 80.73 kg

DRUGS (5)
  1. LYRICA [Suspect]
     Indication: TRIGEMINAL NEURALGIA
     Dosage: 300 MG/DAY
     Route: 048
     Dates: start: 201302
  2. FLUOXETINE [Concomitant]
     Dosage: 60 MG, 1X/DAY
  3. SINGULAIR [Concomitant]
     Dosage: UNK
  4. ASPIRIN [Concomitant]
     Dosage: UNK, AS NEEDED
  5. CLONAZEPAM [Concomitant]
     Dosage: 1 MG, 2X/DAY
     Route: 048

REACTIONS (5)
  - Vision blurred [Unknown]
  - Visual impairment [Unknown]
  - Panic reaction [Unknown]
  - Pain [Unknown]
  - Visual acuity reduced [Unknown]
